FAERS Safety Report 13928949 (Version 1)
Quarter: 2017Q3

REPORT INFORMATION
  Report Type: Report from Study
  Country: DE (occurrence: DE)
  Receive Date: 20170901
  Receipt Date: 20170901
  Transmission Date: 20171127
  Serious: Yes (Other)
  Sender: FDA-Public Use
  Company Number: DE-CIPLA LTD.-2017DE15654

PATIENT

DRUGS (2)
  1. LEVENOGESTREL [Suspect]
     Active Substance: LEVONORGESTREL
     Dosage: 40 ?G PER DAY
     Route: 067
  2. ANASTROZOLE. [Suspect]
     Active Substance: ANASTROZOLE
     Dosage: 1050 ?G PER DAY
     Route: 067

REACTIONS (1)
  - Ovarian cyst [Unknown]
